FAERS Safety Report 4726294-0 (Version None)
Quarter: 2005Q3

REPORT INFORMATION
  Report Type: 
  Country: None (occurrence: None)
  Receive Date: 20050721
  Receipt Date: 20050708
  Transmission Date: 20060218
  Serious: Yes (Other)
  Sender: FDA-Public Use
  Company Number: 2005BI007458

PATIENT
  Age: 55 Year
  Sex: Female
  Weight: 58.514 kg

DRUGS (3)
  1. AVONEX [Suspect]
     Indication: MULTIPLE SCLEROSIS
     Dosage: 15 UG;QW;IM; SEE IMAGE
     Route: 030
     Dates: start: 20040801, end: 20040801
  2. AVONEX [Suspect]
     Indication: MULTIPLE SCLEROSIS
     Dosage: 15 UG;QW;IM; SEE IMAGE
     Route: 030
     Dates: start: 20050318, end: 20050325
  3. AVONEX [Suspect]
     Indication: MULTIPLE SCLEROSIS
     Dosage: 15 UG;QW;IM; SEE IMAGE
     Route: 030
     Dates: start: 20050401, end: 20050401

REACTIONS (18)
  - ASTHENIA [None]
  - BEDRIDDEN [None]
  - BRUXISM [None]
  - BURNING SENSATION [None]
  - DYSSTASIA [None]
  - FALL [None]
  - FEELING ABNORMAL [None]
  - HEART RATE INCREASED [None]
  - HEART SOUNDS ABNORMAL [None]
  - HYPOAESTHESIA [None]
  - INCONTINENCE [None]
  - INFLUENZA LIKE ILLNESS [None]
  - JOINT SPRAIN [None]
  - MIGRAINE [None]
  - MOBILITY DECREASED [None]
  - MUSCLE RIGIDITY [None]
  - PAIN [None]
  - THROAT TIGHTNESS [None]
